FAERS Safety Report 21407568 (Version 3)
Quarter: 2025Q4

REPORT INFORMATION
  Report Type: Report from Study
  Country: CA (occurrence: CA)
  Receive Date: 20221004
  Receipt Date: 20251205
  Transmission Date: 20260119
  Serious: Yes (Other)
  Sender: TAKEDA
  Company Number: CA-TAKEDA-2022TUS069471

PATIENT
  Age: 57 Year
  Sex: Male

DRUGS (10)
  1. VEDOLIZUMAB [Suspect]
     Active Substance: VEDOLIZUMAB
     Indication: Colitis ulcerative
     Dosage: 300 MILLIGRAM, Q4WEEKS
     Dates: start: 20160824
  2. VEDOLIZUMAB [Suspect]
     Active Substance: VEDOLIZUMAB
     Dosage: 300 MILLIGRAM, Q4WEEKS
  3. VEDOLIZUMAB [Suspect]
     Active Substance: VEDOLIZUMAB
     Dosage: 300 MILLIGRAM, Q4WEEKS
  4. IMURAN [Concomitant]
     Active Substance: AZATHIOPRINE
     Dosage: UNK UNK, QD
     Dates: start: 20020301
  5. Salofalk [Concomitant]
     Dosage: UNK UNK, QD
     Dates: start: 20020301
  6. Calcium+vit d [Concomitant]
     Dosage: UNK UNK, QD
  7. COD LIVER OIL [Concomitant]
     Active Substance: COD LIVER OIL
     Dosage: UNK UNK, QD
  8. METAMUCIL [Concomitant]
     Active Substance: PLANTAGO SEED
     Dosage: UNK
  9. ZENHALE [Concomitant]
     Active Substance: FORMOTEROL FUMARATE\MOMETASONE FUROATE
     Dosage: UNK
  10. SPIRIVA [Concomitant]
     Active Substance: TIOTROPIUM BROMIDE MONOHYDRATE
     Dosage: UNK

REACTIONS (2)
  - Basal cell carcinoma [Recovering/Resolving]
  - Vascular access site bruising [Unknown]

NARRATIVE: CASE EVENT DATE: 20251126
